FAERS Safety Report 4453778-5 (Version None)
Quarter: 2004Q3

REPORT INFORMATION
  Report Type: 
  Country: None (occurrence: None)
  Receive Date: 20040902
  Receipt Date: 20040617
  Transmission Date: 20050211
  Serious: No
  Sender: FDA-Public Use
  Company Number: 200418425BWH

PATIENT
  Age: 65 Year
  Sex: Male
  Weight: 72.5755 kg

DRUGS (6)
  1. LEVITRA [Suspect]
     Indication: ERECTILE DYSFUNCTION
     Dosage: 10 MG, TOTAL DAILY, ORAL
     Route: 048
     Dates: start: 20040616
  2. VIAGRA [Concomitant]
  3. COUMADIN [Concomitant]
  4. AIOVANHC [Concomitant]
  5. ATROVENT [Concomitant]
  6. CHOLESTEROL LOWERING MEDICATION [Concomitant]

REACTIONS (1)
  - THERAPEUTIC RESPONSE DELAYED [None]
